FAERS Safety Report 11200544 (Version 5)
Quarter: 2015Q4

REPORT INFORMATION
  Report Type: Report from Study
  Country: BR (occurrence: BR)
  Receive Date: 20150618
  Receipt Date: 20151119
  Transmission Date: 20160304
  Serious: Yes (Hospitalization, Other)
  Sender: FDA-Public Use
  Company Number: PHHY2015BR070304

PATIENT
  Age: 10 Year
  Sex: Female
  Weight: 29 kg

DRUGS (6)
  1. RANITIDINE [Concomitant]
     Active Substance: RANITIDINE\RANITIDINE HYDROCHLORIDE
     Indication: DYSPEPSIA
     Dosage: 2 DF, QD
     Route: 048
  2. RANITIDINE [Concomitant]
     Active Substance: RANITIDINE\RANITIDINE HYDROCHLORIDE
     Indication: ABDOMINAL PAIN UPPER
  3. EXJADE [Suspect]
     Active Substance: DEFERASIROX
     Dosage: 750 MG, QOD
     Route: 048
     Dates: end: 20151029
  4. EXJADE [Suspect]
     Active Substance: DEFERASIROX
     Indication: THALASSAEMIA
     Dosage: 500 MG, QOD
     Route: 048
     Dates: start: 2008
  5. HYDROXYUREA. [Concomitant]
     Active Substance: HYDROXYUREA
     Indication: THALASSAEMIA
     Dosage: 1 DF, QD
     Route: 048
  6. FOLIC ACID. [Concomitant]
     Active Substance: FOLIC ACID
     Indication: THALASSAEMIA
     Dosage: 1 DF, QD
     Route: 048

REACTIONS (9)
  - Vomiting [Recovering/Resolving]
  - Vomiting [Recovered/Resolved]
  - Pyrexia [Recovered/Resolved]
  - Headache [Recovering/Resolving]
  - Abdominal pain [Recovering/Resolving]
  - Sinusitis [Recovering/Resolving]
  - Headache [Recovered/Resolved]
  - Abdominal pain upper [Recovered/Resolved]
  - Iron metabolism disorder [Unknown]

NARRATIVE: CASE EVENT DATE: 201410
